FAERS Safety Report 7471413-9 (Version None)
Quarter: 2011Q2

REPORT INFORMATION
  Report Type: 
  Country: None (occurrence: None)
  Receive Date: 20110511
  Receipt Date: 20110502
  Transmission Date: 20111010
  Serious: Yes (Hospitalization)
  Sender: FDA-Public Use
  Company Number: US-BIOGENIDEC-2009BI038352

PATIENT
  Age: 50 Year
  Sex: Female
  Weight: 56 kg

DRUGS (3)
  1. TYSABRI [Suspect]
     Indication: MULTIPLE SCLEROSIS
     Route: 042
     Dates: start: 20081031, end: 20091016
  2. TYSABRI [Suspect]
     Route: 042
     Dates: start: 20100115
  3. PROVIGIL [Concomitant]

REACTIONS (12)
  - MENINGITIS HERPES [None]
  - NECK PAIN [None]
  - ANXIETY [None]
  - HEADACHE [None]
  - OPTIC NEURITIS [None]
  - ASTHENIA [None]
  - COGNITIVE DISORDER [None]
  - WHITE BLOOD CELL COUNT INCREASED [None]
  - MULTIPLE SCLEROSIS RELAPSE [None]
  - FATIGUE [None]
  - PYREXIA [None]
  - CENTRAL VENOUS CATHETERISATION [None]
